FAERS Safety Report 8063472-X (Version None)
Quarter: 2012Q1

REPORT INFORMATION
  Report Type: 
  Country: None (occurrence: None)
  Receive Date: 20120123
  Receipt Date: 20120119
  Transmission Date: 20120608
  Serious: Yes (Death)
  Sender: FDA-Public Use
  Company Number: PHEH2012US001891

PATIENT
  Sex: Female
  Weight: 56 kg

DRUGS (2)
  1. RECLAST [Suspect]
     Route: 042
     Dates: start: 20090721
  2. RECLAST [Suspect]
     Indication: OSTEOPOROSIS
     Dosage: UNK UKN, UNK
     Route: 042
     Dates: start: 20080520

REACTIONS (1)
  - DEATH [None]
